FAERS Safety Report 7062600-2 (Version None)
Quarter: 2010Q4

REPORT INFORMATION
  Report Type: 
  Country: None (occurrence: None)
  Receive Date: 20101026
  Receipt Date: 20100720
  Transmission Date: 20110411
  Serious: No
  Sender: FDA-Public Use
  Company Number: US-PFIZER INC-2006007364

PATIENT
  Sex: Female
  Weight: 60 kg

DRUGS (3)
  1. LIPITOR [Suspect]
     Indication: BLOOD CHOLESTEROL INCREASED
     Route: 048
     Dates: start: 20051123
  2. FOSAMAX [Concomitant]
     Route: 065
  3. ASPIRIN [Concomitant]
     Route: 065

REACTIONS (5)
  - ARTHRALGIA [None]
  - INSOMNIA [None]
  - PAIN IN EXTREMITY [None]
  - POLLAKIURIA [None]
  - RESTLESS LEGS SYNDROME [None]
